FAERS Safety Report 7029518-2 (Version None)
Quarter: 2010Q4

REPORT INFORMATION
  Report Type: 
  Country: None (occurrence: None)
  Receive Date: 20101005
  Receipt Date: 20100927
  Transmission Date: 20110411
  Serious: Yes (Hospitalization, Other)
  Sender: FDA-Public Use
  Company Number: JP-ABBOTT-10P-087-0673470-00

PATIENT
  Age: 60 Year
  Sex: Female

DRUGS (1)
  1. HUMIRA [Suspect]
     Indication: PRODUCT USED FOR UNKNOWN INDICATION
     Route: 058
     Dates: start: 20080601

REACTIONS (15)
  - ANTI-NEUTROPHIL CYTOPLASMIC ANTIBODY POSITIVE VASCULITIS [None]
  - CAPILLARY FRAGILITY [None]
  - DECREASED APPETITE [None]
  - HYPOPHAGIA [None]
  - NAUSEA [None]
  - POST PROCEDURAL HAEMORRHAGE [None]
  - RASH MACULAR [None]
  - RENAL FAILURE ACUTE [None]
  - RENAL FAILURE CHRONIC [None]
  - RENAL IMPAIRMENT [None]
  - SKIN DISORDER [None]
  - SYSTEMIC LUPUS ERYTHEMATOSUS [None]
  - THROMBOSIS [None]
  - VOMITING [None]
  - WEIGHT DECREASED [None]
